FAERS Safety Report 15851753 (Version 4)
Quarter: 2019Q1

REPORT INFORMATION
  Report Type: Report from Study
  Country: GB (occurrence: GB)
  Receive Date: 20190122
  Receipt Date: 20190222
  Transmission Date: 20190417
  Serious: Yes (Death, Hospitalization, Other)
  Sender: FDA-Public Use
  Company Number: GB-AUROBINDO-AUR-APL-2019-002301

PATIENT

DRUGS (1)
  1. PARACETAMOL TABLET [Suspect]
     Active Substance: ACETAMINOPHEN
     Indication: PRODUCT USED FOR UNKNOWN INDICATION
     Dosage: 16-62 GRAMS
     Route: 048

REACTIONS (5)
  - Intentional overdose [Not Recovered/Not Resolved]
  - Transplant dysfunction [Not Recovered/Not Resolved]
  - Multiple organ dysfunction syndrome [Fatal]
  - Acute hepatic failure [Fatal]
  - Overdose [Fatal]
